FAERS Safety Report 20611502 (Version 1)
Quarter: 2022Q1

REPORT INFORMATION
  Report Type: Spontaneous
  Country: US (occurrence: US)
  Receive Date: 20220318
  Receipt Date: 20220318
  Transmission Date: 20220423
  Serious: Yes (Other)
  Sender: FDA-Public Use
  Company Number: US-JAZZ-2022-US-006219

PATIENT
  Age: 30 Year
  Sex: Female

DRUGS (2)
  1. DEFITELIO [Suspect]
     Active Substance: DEFIBROTIDE SODIUM
     Indication: Venoocclusive disease
     Dosage: 6.25 MILLIGRAM/KILOGRAM Q6H
     Route: 042
  2. DEFITELIO [Suspect]
     Active Substance: DEFIBROTIDE SODIUM
     Dosage: 2.5 MILLIGRAM/KILOGRAM Q6H
     Route: 042

REACTIONS (1)
  - Pulmonary alveolar haemorrhage [Unknown]
